FAERS Safety Report 9160700 (Version 1)
Quarter: 2013Q1

REPORT INFORMATION
  Report Type: Spontaneous
  Country: US (occurrence: US)
  Receive Date: 20130313
  Receipt Date: 20130313
  Transmission Date: 20140127
  Serious: No
  Sender: FDA-Public Use
  Company Number: US-ABBOTT-12P-163-0914193-00

PATIENT
  Sex: Female

DRUGS (2)
  1. DEPAKOTE [Suspect]
     Indication: BIPOLAR DISORDER
  2. DEPAKOTE [Suspect]
     Indication: ANXIETY

REACTIONS (9)
  - Drug ineffective [Unknown]
  - Drug ineffective [Unknown]
  - Product quality issue [Unknown]
  - Product quality issue [Unknown]
  - Nausea [Unknown]
  - Irritability [Unknown]
  - Anxiety [Unknown]
  - Mania [Unknown]
  - Bipolar disorder [Unknown]
